FAERS Safety Report 5167755-2 (Version None)
Quarter: 2006Q4

REPORT INFORMATION
  Report Type: 
  Country: None (occurrence: None)
  Receive Date: 20061208
  Receipt Date: 20061129
  Transmission Date: 20070319
  Serious: Yes (Hospitalization)
  Sender: FDA-Public Use
  Company Number: DE-BAYER-200611661BVD

PATIENT
  Age: 63 Year
  Sex: Female

DRUGS (12)
  1. SORAFENIB [Suspect]
     Indication: RENAL CELL CARCINOMA STAGE UNSPECIFIED
     Dosage: TOTAL DAILY DOSE: 800 MG
     Route: 048
     Dates: start: 20060113, end: 20061107
  2. NOVAMINSULFON [Concomitant]
     Route: 048
     Dates: start: 20060628, end: 20060725
  3. NOVAMINSULFON [Concomitant]
     Route: 048
     Dates: start: 20060726, end: 20060827
  4. MORPHIN RETARD [Concomitant]
     Route: 065
     Dates: start: 20060628, end: 20060917
  5. MORPHIN RETARD [Concomitant]
     Route: 065
     Dates: start: 20060918, end: 20060924
  6. MORPHIN RETARD [Concomitant]
     Route: 065
     Dates: start: 20060925
  7. MORPHIN RETARD [Concomitant]
     Route: 065
     Dates: start: 20060628, end: 20061113
  8. AMOXICILLIN [Concomitant]
     Route: 065
     Dates: start: 20060814, end: 20060828
  9. CIPROBAY [Concomitant]
     Route: 065
     Dates: start: 20060925, end: 20061002
  10. CLONT [Concomitant]
     Route: 065
     Dates: start: 20060925, end: 20061002
  11. METRONIDAZOLE [Concomitant]
     Route: 065
     Dates: start: 20061002, end: 20061001
  12. CIPROFLOX [Concomitant]
     Route: 065
     Dates: start: 20061002, end: 20061001

REACTIONS (1)
  - OEDEMA [None]
